FAERS Safety Report 6081137-0 (Version None)
Quarter: 2009Q1

REPORT INFORMATION
  Report Type: 
  Country: None (occurrence: None)
  Receive Date: 20090213
  Receipt Date: 20090204
  Transmission Date: 20090719
  Serious: Yes (Death)
  Sender: FDA-Public Use
  Company Number: 200910366BYL

PATIENT
  Age: 72 Year
  Sex: Male

DRUGS (23)
  1. FLUDARA [Suspect]
     Indication: NON-HODGKIN'S LYMPHOMA UNSPECIFIED HISTOLOGY INDOLENT STAGE IV
     Dosage: 50 MG ORAL
     Route: 048
     Dates: start: 20080410, end: 20080411
  2. PREDNISOLONE [Concomitant]
  3. BARACLUDE (ANTIVIRALS FOR SYSTEMIC USE) [Concomitant]
  4. RABEPRAZOLE SODIUM [Concomitant]
  5. MAGMITT (MAGNESIUM OXIDE) [Concomitant]
  6. WARFARIN SODIUM [Concomitant]
  7. PURSENNID (SENNOSIDE A+B) [Concomitant]
  8. NASEA (RAMOSETRON HYDROCHLORIDE) [Concomitant]
  9. SOLDEM 3A [Concomitant]
  10. AMIGRAND (UNCODEABLE ^UNCLASSIFIABLE^) [Concomitant]
  11. OMEPRAZOLE [Concomitant]
  12. SOLACET D [Concomitant]
  13. KN 1A [Concomitant]
  14. KAYTWO N (MENATETRENONE) [Concomitant]
  15. NEOPAREN-1 (UNCODEABLE ^UNCLASSIFIABLE^) [Concomitant]
  16. NEOPAREN-2 (UNCODEABLE ^UNCLASSIFIABLE^) [Concomitant]
  17. INTRAFAT [Concomitant]
  18. VINCRISTINE SULFATE [Concomitant]
  19. DOXORUBICIN HYDROCHLORIDE (DOXORUBICIN HYDROCHLORIDE) [Concomitant]
  20. DEXAMETHASONE (DEXAMETHASONE [DEXAMETASONE]) [Concomitant]
  21. MELPHALAN (MELPHALAN) [Concomitant]
  22. PREDNISOLONE [Concomitant]
  23. CYCLOPHOSPHAMIDE [Concomitant]

REACTIONS (5)
  - ANAEMIA [None]
  - C-REACTIVE PROTEIN INCREASED [None]
  - DISEASE PROGRESSION [None]
  - HEPATIC ENZYME ABNORMAL [None]
  - PLATELET COUNT DECREASED [None]
